FAERS Safety Report 4790325-2 (Version None)
Quarter: 2005Q4

REPORT INFORMATION
  Report Type: 
  Country: None (occurrence: None)
  Receive Date: 20051005
  Receipt Date: 20051005
  Transmission Date: 20060501
  Serious: No
  Sender: FDA-Public Use
  Company Number: None

PATIENT
  Age: 61 Year
  Sex: Male
  Weight: 80.6 kg

DRUGS (16)
  1. REGULAR INSULIN [Suspect]
     Indication: DIABETES MELLITUS
     Dosage: 52 UNITS SQ, SSI
     Dates: start: 20040518
  2. ACETAMINOPHEN [Concomitant]
  3. ASPIRIN [Concomitant]
  4. ASCORBIC ACID [Concomitant]
  5. ATORVASTATIN [Concomitant]
  6. BISACODYL [Concomitant]
  7. CEFAZOLIN [Concomitant]
  8. ENALAPRIL [Concomitant]
  9. FUROSEMIDE [Concomitant]
  10. LEVOTHYROXINE [Concomitant]
  11. LANSOPRAZOLE [Concomitant]
  12. M.V.I. [Concomitant]
  13. OXYCODONE AND ACETAMINOPHEN [Concomitant]
  14. POTASSIUM CHLORIDE [Concomitant]
  15. SERTRALINE HCL [Concomitant]
  16. ZINC SULFATE [Concomitant]

REACTIONS (1)
  - BLOOD GLUCOSE DECREASED [None]
